FAERS Safety Report 4865381-3 (Version None)
Quarter: 2005Q4

REPORT INFORMATION
  Report Type: 
  Country: None (occurrence: None)
  Receive Date: 20051223
  Receipt Date: 20040112
  Transmission Date: 20060501
  Serious: Yes (Hospitalization)
  Sender: FDA-Public Use
  Company Number: 2004AP00183

PATIENT
  Age: 53 Year
  Sex: Male

DRUGS (2)
  1. OMEPRAZOLE [Suspect]
  2. DICLOFENAC [Concomitant]

REACTIONS (5)
  - DEHYDRATION [None]
  - DIARRHOEA [None]
  - NAUSEA [None]
  - PYREXIA [None]
  - SALMONELLOSIS [None]
